FAERS Safety Report 17051880 (Version 1)
Quarter: 2019Q4

REPORT INFORMATION
  Report Type: Spontaneous
  Country: CN (occurrence: CN)
  Receive Date: 20191120
  Receipt Date: 20191120
  Transmission Date: 20200122
  Serious: Yes (Other)
  Sender: FDA-Public Use
  Company Number: NVSC2019CN040891

PATIENT

DRUGS (2)
  1. TRICLABENDAZOLE [Suspect]
     Active Substance: TRICLABENDAZOLE
     Indication: PRODUCT USED FOR UNKNOWN INDICATION
     Dosage: 2 G, QD
     Route: 065
  2. PRAZIQUANTEL. [Suspect]
     Active Substance: PRAZIQUANTEL
     Indication: PRODUCT USED FOR UNKNOWN INDICATION
     Dosage: 1 G, QD
     Route: 065

REACTIONS (3)
  - Overdose [Unknown]
  - Retinopathy [Unknown]
  - Visual acuity reduced [Recovering/Resolving]
